FAERS Safety Report 6538372-4 (Version None)
Quarter: 2010Q1

REPORT INFORMATION
  Report Type: 
  Country: None (occurrence: None)
  Receive Date: 20100114
  Receipt Date: 20100107
  Transmission Date: 20100710
  Serious: Yes (Hospitalization)
  Sender: FDA-Public Use
  Company Number: CN-WYE-H12944210

PATIENT
  Age: 82 Year
  Sex: Male

DRUGS (5)
  1. CORDARONE [Suspect]
     Indication: ATRIAL FIBRILLATION
     Route: 048
     Dates: start: 20091116, end: 20091120
  2. CORDARONE [Suspect]
     Route: 048
     Dates: start: 20091121
  3. METOPROLOL TARTRATE [Concomitant]
     Dosage: UNSPECIFIED
  4. ACETYLSALICYLIC ACID [Concomitant]
     Dosage: UNSPECIFIED
  5. ISOSORBIDE DINITRATE [Concomitant]
     Dosage: UNSPECIFIED

REACTIONS (1)
  - PNEUMONIA [None]
